FAERS Safety Report 16628956 (Version 1)
Quarter: 2019Q3

REPORT INFORMATION
  Report Type: Report from Study
  Country: DE (occurrence: DE)
  Receive Date: 20190725
  Receipt Date: 20190725
  Transmission Date: 20191004
  Serious: Yes (Other)
  Sender: FDA-Public Use
  Company Number: DE-TEVA-2019-DE-1081311

PATIENT

DRUGS (3)
  1. CISPLATIN. [Suspect]
     Active Substance: CISPLATIN
     Indication: PLEURAL MESOTHELIOMA MALIGNANT
     Dosage: RECEIVED INTRAPERITONEAL CHEMOPERFUSION INCLUDING CISPLATIN AND DOXORUBICIN CISPLATIN INTO THE 5 000
     Route: 033
  2. DOXORUBICIN [Suspect]
     Active Substance: DOXORUBICIN
     Indication: PLEURAL MESOTHELIOMA MALIGNANT
     Dosage: RECEIVED INTRAPERITONEAL CHEMOPERFUSION INCLUDING CISPLATIN AND DOXORUBICIN INTO THE THE 5 000ML OF
     Route: 033
  3. SALINE SOLUTION [Concomitant]
     Active Substance: SODIUM CHLORIDE
     Dosage: RECEIVED INTRAPERITONEAL CHEMOPERFUSION INCLUDING CISPLATIN AND DOXORUBICIN INTO THE 5,000ML OF 0...
     Route: 033

REACTIONS (1)
  - Renal failure [Recovered/Resolved]
